FAERS Safety Report 5460651-2 (Version None)
Quarter: 2007Q3

REPORT INFORMATION
  Report Type: 
  Country: None (occurrence: None)
  Receive Date: 20070919
  Receipt Date: 20070904
  Transmission Date: 20080115
  Serious: Yes (Hospitalization)
  Sender: FDA-Public Use
  Company Number: NO-PFIZER INC-2007070601

PATIENT
  Sex: Female

DRUGS (4)
  1. CETIRIZINE HCL [Suspect]
     Indication: FOOD ALLERGY
  2. LEVOCETIRIZINE [Suspect]
     Indication: FOOD ALLERGY
     Dates: start: 20031020, end: 20040428
  3. ESCITALOPRAM OXALATE [Concomitant]
  4. OXAZEPAM [Concomitant]
     Dates: start: 20040329, end: 20040412

REACTIONS (14)
  - CHILLS [None]
  - DISTURBANCE IN ATTENTION [None]
  - DRY MOUTH [None]
  - DYSGEUSIA [None]
  - EATING DISORDER [None]
  - FEELING ABNORMAL [None]
  - FEELING HOT [None]
  - HEART RATE INCREASED [None]
  - LIVER DISORDER [None]
  - PANIC DISORDER [None]
  - PAROSMIA [None]
  - SUICIDAL IDEATION [None]
  - URINARY TRACT INFECTION [None]
  - WEIGHT DECREASED [None]
